FAERS Safety Report 9591946 (Version 2)
Quarter: 2013Q4

REPORT INFORMATION
  Report Type: Spontaneous
  Country: US (occurrence: US)
  Receive Date: 20131004
  Receipt Date: 20131004
  Transmission Date: 20140711
  Serious: No
  Sender: FDA-Public Use
  Company Number: US-AMGEN-USASP2012073624

PATIENT
  Age: 66 Year
  Sex: Female

DRUGS (19)
  1. ENBREL [Suspect]
     Indication: PSORIASIS
     Dosage: 50 MG, 2 TIMES/WK
     Route: 058
     Dates: start: 20121026
  2. ENBREL [Suspect]
     Indication: PSORIATIC ARTHROPATHY
  3. CALCIUM [Concomitant]
     Dosage: UNK
  4. GLUCOSAMINE [Concomitant]
     Dosage: UNK
  5. ASPIRIN [Concomitant]
     Dosage: UNK
  6. VITAMIN D                          /00107901/ [Concomitant]
     Dosage: UNK
  7. ADVIL                              /00044201/ [Concomitant]
     Dosage: UNK
  8. ULORIC [Concomitant]
     Dosage: 80 MG, UNK
  9. METFORMIN HCL [Concomitant]
     Dosage: UNK
  10. COZAAR [Concomitant]
     Dosage: 50 MG, UNK
  11. LANTUS [Concomitant]
     Dosage: 40 UNIT, UNK
     Route: 058
  12. ALDACTAZIDE [Concomitant]
     Dosage: 25-25
  13. GABAPENTIN [Concomitant]
     Dosage: 300 MG, UNK
  14. PROMETRIUM                         /00110701/ [Concomitant]
     Dosage: 100 MG, UNK
  15. GLIMEPIRIDE [Concomitant]
     Dosage: 4 MG, UNK
  16. LASIX                              /00032601/ [Concomitant]
     Dosage: 40 MG, UNK
  17. LOPRESSOR [Concomitant]
     Dosage: 100 MG, UNK
  18. VAGIFEM [Concomitant]
     Dosage: 10 MUG, UNK
     Route: 067
  19. NEXIUM                             /01479303/ [Concomitant]
     Dosage: 40 UNK, UNK

REACTIONS (6)
  - Cough [Not Recovered/Not Resolved]
  - Wound [Not Recovered/Not Resolved]
  - Throat irritation [Not Recovered/Not Resolved]
  - Rhinorrhoea [Not Recovered/Not Resolved]
  - Skin plaque [Not Recovered/Not Resolved]
  - Nasopharyngitis [Recovering/Resolving]
